FAERS Safety Report 6154988-1 (Version None)
Quarter: 2009Q2

REPORT INFORMATION
  Report Type: 
  Country: None (occurrence: None)
  Receive Date: 20090410
  Receipt Date: 20090331
  Transmission Date: 20091009
  Serious: Yes (Other)
  Sender: FDA-Public Use
  Company Number: 1000005649

PATIENT
  Age: 28 Year
  Sex: Male
  Weight: 95 kg

DRUGS (4)
  1. ESCITALOPRAM OXALATE [Suspect]
     Dosage: 100 MG (100 MG,ONCE),ORAL ; ORAL
     Route: 048
     Dates: start: 20090331, end: 20090331
  2. MIRTAZAPINE [Suspect]
     Dosage: 240 MG (240 MG,ONCE),ORAL
     Route: 048
     Dates: start: 20090331, end: 20090331
  3. TAVOR (0.5 MILLIGRAM, TABLETS) [Suspect]
     Dosage: 20 MG (20 MG,ONCE),ORAL
     Route: 048
     Dates: start: 20090331, end: 20090331
  4. ALCOHOL [Suspect]
     Dosage: (ONCE,),ORAL
     Route: 048
     Dates: start: 20090331, end: 20090331

REACTIONS (5)
  - AGGRESSION [None]
  - INTENTIONAL OVERDOSE [None]
  - SOPOR [None]
  - SUICIDE ATTEMPT [None]
  - TACHYCARDIA [None]
